FAERS Safety Report 5106416-2 (Version None)
Quarter: 2006Q3

REPORT INFORMATION
  Report Type: 
  Country: None (occurrence: None)
  Receive Date: 20060918
  Receipt Date: 20060908
  Transmission Date: 20061208
  Serious: Yes (Hospitalization)
  Sender: FDA-Public Use
  Company Number: PHRM2006FR02510

PATIENT
  Age: 70 Year
  Sex: Male

DRUGS (12)
  1. PARLODEL [Suspect]
     Dosage: 10 MG, QD
     Route: 048
  2. LERCAN [Suspect]
     Dosage: 1 DF, QD
     Route: 050
  3. LARGACTIL [Suspect]
     Dosage: 3 MG DAILY
     Route: 048
  4. LASILIX [Suspect]
     Dosage: 1 DF, QD
     Route: 048
  5. TRANSIPEG /FRA/ [Suspect]
     Dosage: 2.95 G, QD
     Route: 048
  6. JOSIR [Suspect]
     Dosage: 0.4 MG, QD
     Route: 048
  7. DEPAMIDE [Concomitant]
     Route: 048
  8. MEPRONIZINE [Concomitant]
     Route: 048
  9. PRAZEPAM [Concomitant]
     Route: 048
  10. LEPTICUR [Concomitant]
     Route: 048
  11. SINEMET [Concomitant]
     Route: 048
  12. TROSPIUM CHLORIDE [Concomitant]
     Route: 048

REACTIONS (6)
  - CREATININE RENAL CLEARANCE DECREASED [None]
  - DEHYDRATION [None]
  - HYPERTHERMIA [None]
  - HYPOTENSION [None]
  - MALAISE [None]
  - RENAL FAILURE [None]
